FAERS Safety Report 15158113 (Version 1)
Quarter: 2018Q3

REPORT INFORMATION
  Report Type: Spontaneous
  Country: US (occurrence: US)
  Receive Date: 20180718
  Receipt Date: 20180718
  Transmission Date: 20181010
  Serious: Yes (Death, Other)
  Sender: FDA-Public Use
  Company Number: US-NAPPMUNDI-USA-2018-0144191

PATIENT
  Sex: Male

DRUGS (1)
  1. OXYCONTIN [Suspect]
     Active Substance: OXYCODONE HYDROCHLORIDE
     Indication: BACK PAIN
     Route: 048

REACTIONS (7)
  - Drug dependence [Unknown]
  - Loss of consciousness [Unknown]
  - Inadequate analgesia [Unknown]
  - Completed suicide [Fatal]
  - Dehydration [Unknown]
  - Nephropathy [Unknown]
  - Intentional overdose [Fatal]

NARRATIVE: CASE EVENT DATE: 2006
